FAERS Safety Report 10934737 (Version 2)
Quarter: 2015Q4

REPORT INFORMATION
  Report Type: Spontaneous
  Country: US (occurrence: US)
  Receive Date: 20150320
  Receipt Date: 20151112
  Transmission Date: 20160304
  Serious: Yes (Death, Congenital Anomaly, Other)
  Sender: FDA-Public Use
  Company Number: US-ELI_LILLY_AND_COMPANY-US201503005205

PATIENT

DRUGS (2)
  1. LITHIUM. [Concomitant]
     Active Substance: LITHIUM
     Dosage: UNK
     Dates: end: 199512
  2. PROZAC [Suspect]
     Active Substance: FLUOXETINE HYDROCHLORIDE
     Indication: PRODUCT USED FOR UNKNOWN INDICATION
     Dosage: UNK, UNKNOWN
     Route: 065

REACTIONS (6)
  - Ventricular septal defect [Unknown]
  - Pericardial effusion [Unknown]
  - Endocardial fibroelastosis [Unknown]
  - Foetal exposure during pregnancy [Unknown]
  - Transposition of the great vessels [Fatal]
  - Hypoplastic left heart syndrome [Unknown]
